FAERS Safety Report 16047826 (Version 2)
Quarter: 2020Q1

REPORT INFORMATION
  Report Type: Report from Study
  Country: US (occurrence: US)
  Receive Date: 20190307
  Receipt Date: 20200215
  Transmission Date: 20200409
  Serious: Yes (Hospitalization)
  Sender: FDA-Public Use
  Company Number: US-ACTELION-A-US2018-183893

PATIENT
  Age: 64 Year
  Sex: Male

DRUGS (10)
  1. ADEMPAS [Concomitant]
     Active Substance: RIOCIGUAT
  2. DIGOX [Concomitant]
     Active Substance: DIGOXIN
     Dosage: 0.25 MG/ML
  3. ENOXAPARIN [Concomitant]
     Active Substance: ENOXAPARIN
  4. DILTIAZEM. [Concomitant]
     Active Substance: DILTIAZEM
  5. WARFARIN [Concomitant]
     Active Substance: WARFARIN
     Dosage: 6 MG
  6. OPSUMIT [Suspect]
     Active Substance: MACITENTAN
     Indication: PULMONARY HYPERTENSION
     Dosage: 10 MG, QD
     Route: 048
     Dates: start: 20181220
  7. ESCITALOPRAM OXALATE. [Concomitant]
     Active Substance: ESCITALOPRAM OXALATE
  8. SPIRONOLACTONE. [Concomitant]
     Active Substance: SPIRONOLACTONE
     Dosage: 100 MG
  9. BUMETANIDE. [Concomitant]
     Active Substance: BUMETANIDE
  10. FUROSEMIDE. [Concomitant]
     Active Substance: FUROSEMIDE
     Dosage: 80 MG

REACTIONS (5)
  - Catheterisation cardiac [Unknown]
  - Abdominal cavity drainage [Unknown]
  - Intestinal obstruction [Unknown]
  - Ascites [Unknown]
  - Visual impairment [Unknown]

NARRATIVE: CASE EVENT DATE: 20190213
